FAERS Safety Report 20973073 (Version 1)
Quarter: 2022Q2

REPORT INFORMATION
  Report Type: Spontaneous
  Country: CN (occurrence: US)
  Receive Date: 20220617
  Receipt Date: 20220617
  Transmission Date: 20220721
  Serious: No
  Sender: FDA-Public Use
  Company Number: CN-????????????-218

PATIENT
  Age: 8 None
  Sex: Male

DRUGS (2)
  1. AZITHROMYCIN ANHYDROUS [Suspect]
     Active Substance: AZITHROMYCIN ANHYDROUS
     Indication: Platelet production decreased
  2. N/A [Concomitant]
     Active Substance: UNSPECIFIED INGREDIENT
     Indication: Platelet production decreased

REACTIONS (1)
  - Capillary leak syndrome [Recovering/Resolving]

NARRATIVE: CASE EVENT DATE: 20220311
